FAERS Safety Report 6656382-3 (Version None)
Quarter: 2010Q1

REPORT INFORMATION
  Report Type: 
  Country: None (occurrence: None)
  Receive Date: 20100329
  Receipt Date: 20100323
  Transmission Date: 20100710
  Serious: Yes (Death, Hospitalization, Other)
  Sender: FDA-Public Use
  Company Number: CA-CELGENEUS-028-C5013-10030577

PATIENT
  Sex: Female
  Weight: 60.7 kg

DRUGS (4)
  1. CC-5013 [Suspect]
     Route: 065
     Dates: start: 20100208, end: 20100228
  2. CYCLOPHOSPHAMIDE [Concomitant]
     Indication: DRUG USE FOR UNKNOWN INDICATION
     Route: 065
     Dates: start: 20100319, end: 20100301
  3. VINCRISTINE [Concomitant]
     Indication: DRUG USE FOR UNKNOWN INDICATION
     Route: 065
     Dates: start: 20100319, end: 20100301
  4. DOXORUBICIN HCL [Concomitant]
     Indication: DRUG USE FOR UNKNOWN INDICATION
     Route: 065
     Dates: start: 20100319, end: 20100301

REACTIONS (3)
  - DISEASE PROGRESSION [None]
  - LOBAR PNEUMONIA [None]
  - PLEURAL EFFUSION [None]
